FAERS Safety Report 14911673 (Version 1)
Quarter: 2018Q2

REPORT INFORMATION
  Report Type: Spontaneous
  Country: DE (occurrence: DE)
  Receive Date: 20180518
  Receipt Date: 20180518
  Transmission Date: 20180711
  Serious: Yes (Other)
  Sender: FDA-Public Use
  Company Number: DE-AMGEN-DEUSP2018018626

PATIENT
  Age: 51 Year
  Sex: Male
  Weight: 96 kg

DRUGS (1)
  1. REPATHA [Suspect]
     Active Substance: EVOLOCUMAB
     Indication: HYPERCHOLESTEROLAEMIA
     Dosage: 140 MG, UNK
     Route: 058

REACTIONS (6)
  - Somnolence [Recovered/Resolved]
  - Limb discomfort [Recovered/Resolved]
  - Gynaecomastia [Unknown]
  - Influenza like illness [Recovered/Resolved]
  - Headache [Recovered/Resolved]
  - Loss of libido [Unknown]

NARRATIVE: CASE EVENT DATE: 201709
